FAERS Safety Report 13773923 (Version 2)
Quarter: 2017Q3

REPORT INFORMATION
  Report Type: Spontaneous
  Country: US (occurrence: US)
  Receive Date: 20170720
  Receipt Date: 20170801
  Transmission Date: 20171127
  Serious: No
  Sender: FDA-Public Use
  Company Number: US-009507513-1707USA005242

PATIENT
  Age: 65 Year
  Sex: Male

DRUGS (1)
  1. CUBICIN RF [Suspect]
     Active Substance: DAPTOMYCIN
     Indication: STAPHYLOCOCCAL INFECTION
     Dosage: 500 MG, Q24H
     Route: 042
     Dates: start: 20170621

REACTIONS (2)
  - Pyrexia [Unknown]
  - Hepatic enzyme increased [Unknown]

NARRATIVE: CASE EVENT DATE: 20170705
